FAERS Safety Report 21086177 (Version 2)
Quarter: 2022Q4

REPORT INFORMATION
  Report Type: Spontaneous
  Country: JP (occurrence: JP)
  Receive Date: 20220715
  Receipt Date: 20221226
  Transmission Date: 20230113
  Serious: Yes (Other)
  Sender: FDA-Public Use
  Company Number: JP-BRISTOL-MYERS SQUIBB COMPANY-2022-074011

PATIENT
  Age: 52 Year
  Sex: Male

DRUGS (4)
  1. YERVOY [Suspect]
     Active Substance: IPILIMUMAB
     Indication: Non-small cell lung cancer
     Dosage: 1 EVERY 6 WEEK?TOTAL OF ADMINISTRATION: 2
     Route: 041
     Dates: start: 20210915, end: 20211117
  2. OPDIVO [Suspect]
     Active Substance: NIVOLUMAB
     Indication: Non-small cell lung cancer
     Dosage: 1 EVERY 3 WEEK?TOTAL OF ADMINISTRATION: 3
     Route: 041
     Dates: start: 20210915, end: 20211117
  3. CISPLATIN [Suspect]
     Active Substance: CISPLATIN
     Indication: Non-small cell lung cancer
     Route: 041
  4. PEMETREXED [Suspect]
     Active Substance: PEMETREXED
     Indication: Non-small cell lung cancer
     Route: 041

REACTIONS (1)
  - Liver disorder [Recovered/Resolved]

NARRATIVE: CASE EVENT DATE: 20211117
